FAERS Safety Report 14639988 (Version 3)
Quarter: 2018Q2

REPORT INFORMATION
  Report Type: Report from Study
  Country: US (occurrence: US)
  Receive Date: 20180315
  Receipt Date: 20180613
  Transmission Date: 20180711
  Serious: Yes (Hospitalization)
  Sender: FDA-Public Use
  Company Number: US-ACTELION-A-US2017-149676

PATIENT
  Age: 55 Year
  Sex: Female
  Weight: 95.24 kg

DRUGS (11)
  1. LEVOTHYROXINE. [Concomitant]
     Active Substance: LEVOTHYROXINE
     Dosage: UNK
     Dates: start: 2016
  2. UPTRAVI [Suspect]
     Active Substance: SELEXIPAG
     Indication: PULMONARY HYPERTENSION
     Dosage: 800 MCG, BID
     Route: 048
     Dates: start: 20170117, end: 20170629
  3. OPSUMIT [Suspect]
     Active Substance: MACITENTAN
     Indication: PULMONARY HYPERTENSION
     Dosage: 10 MG, QD
     Route: 048
     Dates: start: 20160829
  4. ATORVASTATIN [Concomitant]
     Active Substance: ATORVASTATIN
  5. POTASSIUM [Concomitant]
     Active Substance: POTASSIUM
  6. GABAPENTIN. [Concomitant]
     Active Substance: GABAPENTIN
     Dosage: UNK
     Dates: start: 201504
  7. UPTRAVI [Suspect]
     Active Substance: SELEXIPAG
     Dosage: UNK
     Route: 048
     Dates: end: 20180325
  8. FUROSEMIDE. [Concomitant]
     Active Substance: FUROSEMIDE
  9. METOLAZONE. [Concomitant]
     Active Substance: METOLAZONE
     Dosage: UNK
     Dates: start: 20160920
  10. UPTRAVI [Suspect]
     Active Substance: SELEXIPAG
     Dosage: 1200 MCG, BID
     Route: 048
  11. UPTRAVI [Suspect]
     Active Substance: SELEXIPAG
     Dosage: 1600 MCG, BID
     Route: 048
     Dates: start: 20170629, end: 20180310

REACTIONS (20)
  - Hepatic cirrhosis [Not Recovered/Not Resolved]
  - Condition aggravated [Unknown]
  - Nausea [Unknown]
  - Ascites [Unknown]
  - Hyponatraemia [Unknown]
  - Acute kidney injury [Not Recovered/Not Resolved]
  - Oropharyngeal pain [Unknown]
  - Dizziness [Unknown]
  - Pulmonary arterial hypertension [Unknown]
  - Hypotension [Not Recovered/Not Resolved]
  - Chest discomfort [Unknown]
  - Vomiting [Unknown]
  - Diarrhoea [Unknown]
  - Biopsy liver [Unknown]
  - Pain in jaw [Recovered/Resolved]
  - Feeling abnormal [Unknown]
  - Oliguria [Not Recovered/Not Resolved]
  - Exercise tolerance decreased [Not Recovered/Not Resolved]
  - Asthenia [Unknown]
  - Headache [Recovered/Resolved]

NARRATIVE: CASE EVENT DATE: 20180203
